FAERS Safety Report 8462398-7 (Version None)
Quarter: 2012Q2

REPORT INFORMATION
  Report Type: 
  Country: None (occurrence: None)
  Receive Date: 20120625
  Receipt Date: 20120618
  Transmission Date: 20120825
  Serious: Yes (Hospitalization)
  Sender: FDA-Public Use
  Company Number: US-BAYER-2012-061275

PATIENT
  Age: 31 Year
  Sex: Female
  Weight: 57.143 kg

DRUGS (5)
  1. NAPROXEN SODIUM [Concomitant]
     Dosage: 550 MG TABLETS; TWICE DAILY
     Dates: start: 20080417
  2. NAPROXEN SODIUM [Concomitant]
     Dosage: 550 MG TABLETS; TWICE DAILY
     Dates: start: 20080214
  3. PROTONIX [Concomitant]
  4. ULTRAM [Concomitant]
     Indication: PAIN
     Dosage: 50 MG EVERY 6 HOURS P.R.N.
  5. YAZ [Suspect]

REACTIONS (1)
  - PULMONARY EMBOLISM [None]
